FAERS Safety Report 14226382 (Version 6)
Quarter: 2018Q1

REPORT INFORMATION
  Report Type: Spontaneous
  Country: US (occurrence: US)
  Receive Date: 20171127
  Receipt Date: 20180110
  Transmission Date: 20180508
  Serious: Yes (Other)
  Sender: FDA-Public Use
  Company Number: US-PFIZER INC-2017496664

PATIENT
  Age: 35 Year
  Sex: Male

DRUGS (5)
  1. MEPIVACAINE HCL [Suspect]
     Active Substance: MEPIVACAINE\MEPIVACAINE HYDROCHLORIDE
     Indication: PAIN
     Dosage: 1 ML, UNK
     Route: 058
     Dates: start: 20170929
  2. CORTISONE ACETATE. [Suspect]
     Active Substance: CORTISONE ACETATE
     Dosage: UNK
  3. BETAMETHASONE ACETATE/BETAMETHASONE SODIUM PHOSPHATE [Suspect]
     Active Substance: BETAMETHASONE ACETATE\BETAMETHASONE SODIUM PHOSPHATE
     Indication: PAIN
     Dosage: 0.5 ML, UNK
     Route: 058
     Dates: start: 20170929, end: 20170929
  4. BETAMETHASONE ACETATE [Suspect]
     Active Substance: BETAMETHASONE ACETATE
     Dosage: UNK
  5. LIDOCAINE HCL [Suspect]
     Active Substance: LIDOCAINE HYDROCHLORIDE
     Indication: PAIN
     Dosage: 1 ML, UNK
     Route: 058
     Dates: start: 20170929

REACTIONS (4)
  - Abscess [Recovering/Resolving]
  - Off label use [Unknown]
  - Cellulitis [Recovering/Resolving]
  - Mycobacterium chelonae infection [Recovering/Resolving]

NARRATIVE: CASE EVENT DATE: 20171025
